FAERS Safety Report 7473570-7 (Version None)
Quarter: 2011Q2

REPORT INFORMATION
  Report Type: 
  Country: None (occurrence: None)
  Receive Date: 20110511
  Receipt Date: 20110509
  Transmission Date: 20111010
  Serious: Yes (Hospitalization)
  Sender: FDA-Public Use
  Company Number: US-MERCK-1105USA01417

PATIENT
  Age: 73 Year
  Sex: Male

DRUGS (4)
  1. DECADRON [Suspect]
     Route: 048
     Dates: start: 20110201
  2. THALOMID [Suspect]
     Route: 048
     Dates: start: 20101101, end: 20101124
  3. DECADRON [Suspect]
     Indication: MULTIPLE MYELOMA
     Route: 048
     Dates: start: 20101025, end: 20101124
  4. THALOMID [Suspect]
     Indication: MULTIPLE MYELOMA
     Dosage: 100 MGX4
     Route: 048
     Dates: start: 20101025, end: 20101101

REACTIONS (1)
  - BLOOD SODIUM DECREASED [None]
